FAERS Safety Report 4286369-X (Version None)
Quarter: 2004Q1

REPORT INFORMATION
  Report Type: 
  Country: None (occurrence: None)
  Receive Date: 20040121
  Receipt Date: 20030428
  Transmission Date: 20041129
  Serious: Yes (Life-Threatening, Hospitalization)
  Sender: FDA-Public Use
  Company Number: A03200300923

PATIENT
  Age: 91 Month
  Sex: Female
  Weight: 77.1115 kg

DRUGS (3)
  1. PLAVIX [Suspect]
     Indication: CEREBROVASCULAR ACCIDENT
     Dosage: 75 MG QD-ORAL
     Route: 048
     Dates: end: 20030401
  2. ASPIRIN [Suspect]
     Indication: CEREBROVASCULAR ACCIDENT
     Dosage: 81 MG-ORAL
     Route: 048
     Dates: end: 20030401
  3. CELEBREX [Suspect]
     Indication: OSTEOARTHRITIS
     Dosage: 200 MG-ORAL
     Route: 048
     Dates: end: 20030101

REACTIONS (3)
  - ANAEMIA [None]
  - GASTROINTESTINAL HAEMORRHAGE [None]
  - HAEMATEMESIS [None]
